FAERS Safety Report 10560222 (Version 2)
Quarter: 2014Q4

REPORT INFORMATION
  Report Type: Spontaneous
  Country: KR (occurrence: KR)
  Receive Date: 20141103
  Receipt Date: 20141107
  Transmission Date: 20150529
  Serious: Yes (Death, Hospitalization, Other)
  Sender: FDA-Public Use
  Company Number: KR-BAYER-2014-155843

PATIENT
  Age: 43 Year
  Sex: Male

DRUGS (1)
  1. SORAFENIB (RAF KINASE INHIBITOR) [Suspect]
     Active Substance: SORAFENIB
     Indication: THYROID CANCER METASTATIC
     Dosage: DAILY DOSE 800 MG
     Route: 048
     Dates: start: 201009, end: 20111017

REACTIONS (7)
  - Malignant pleural effusion [None]
  - Thyroid cancer stage IV [None]
  - Metastases to pelvis [None]
  - Metastases to liver [None]
  - Respiratory failure [Fatal]
  - Thyroid cancer stage IV [Fatal]
  - Metastases to spine [None]

NARRATIVE: CASE EVENT DATE: 201110
